FAERS Safety Report 6831769-4 (Version None)
Quarter: 2010Q3

REPORT INFORMATION
  Report Type: 
  Country: None (occurrence: None)
  Receive Date: 20100707
  Receipt Date: 20100623
  Transmission Date: 20110219
  Serious: Yes (Hospitalization, Other)
  Sender: FDA-Public Use
  Company Number: 230780K08USA

PATIENT
  Age: 61 Year
  Sex: Female

DRUGS (2)
  1. REBIF [Suspect]
     Indication: MULTIPLE SCLEROSIS
     Dosage: 44 MCG, 3 IN 1 WK, SUBCUTANEOUS
     Route: 058
     Dates: start: 20071204, end: 20080101
  2. UNSPECIFIED OVER THE COUNTER PREMEDICATION(ALL OTHER THERAPEUTIC PRODU [Concomitant]

REACTIONS (4)
  - BLOOD ELECTROLYTES ABNORMAL [None]
  - CEREBROVASCULAR ACCIDENT [None]
  - CORONARY ARTERY OCCLUSION [None]
  - MYOCARDIAL INFARCTION [None]
